FAERS Safety Report 8757232 (Version 1)
Quarter: 2012Q4

REPORT INFORMATION
  Report Type: 
  Country: GB (occurrence: GB)
  Receive Date: 20120828
  Receipt Date: 20120828
  Transmission Date: 20130627
  Serious: Yes (Hospitalization)
  Sender: FDA-Public Use
  Company Number: GB-MYLANLABS-2012S1016791

PATIENT
  Age: 63 Year
  Sex: Male

DRUGS (14)
  1. METFORMIN [Suspect]
     Dosage: 500mg twice a day
     Route: 065
  2. BENDROFLUMETHIAZIDE [Concomitant]
     Dosage: 2.5mg once a day
     Route: 065
  3. DOXAZOSIN [Concomitant]
     Dosage: 4mg once a day
     Route: 065
  4. NICARDIPINE [Concomitant]
     Dosage: 45mg once a day
     Route: 065
  5. SIMVASTATIN [Concomitant]
     Dosage: 40mg once a day
     Route: 065
  6. ALFENTANIL [Concomitant]
     Indication: ANAESTHESIA
     Dosage: 1mg
     Route: 042
  7. PROPOFOL [Concomitant]
     Indication: ANAESTHESIA
     Dosage: 200mg
     Route: 042
  8. CISATRACURIUM BESILATE [Concomitant]
     Indication: ANAESTHESIA
     Dosage: 14mg
     Route: 042
  9. ISOFLURANE [Concomitant]
     Indication: ANAESTHESIA
     Route: 065
  10. REMIFENTANIL [Concomitant]
     Indication: ANAESTHESIA
     Route: 065
  11. FUROSEMIDE [Concomitant]
     Dosage: 80mg
     Route: 042
  12. NITROGLYCERIN [Concomitant]
     Route: 065
  13. PHENYLEPHRINE [Concomitant]
     Route: 065
  14. BUPIVACAINE [Concomitant]
     Dosage: 10mL 0.25%
     Route: 008

REACTIONS (2)
  - Lactic acidosis [Recovering/Resolving]
  - Multi-organ failure [Recovering/Resolving]
